FAERS Safety Report 9272315 (Version 1)
Quarter: 2013Q2

REPORT INFORMATION
  Report Type: Spontaneous
  Country: US (occurrence: US)
  Receive Date: 20130506
  Receipt Date: 20130506
  Transmission Date: 20140414
  Serious: Yes (Hospitalization, Other)
  Sender: FDA-Public Use
  Company Number: US-ABBOTT-13P-163-1083132-00

PATIENT
  Age: 69 Year
  Sex: Female
  Weight: 63.56 kg

DRUGS (17)
  1. HUMIRA [Suspect]
     Indication: CROHN^S DISEASE
     Dates: start: 200611, end: 200611
  2. HUMIRA [Suspect]
     Dosage: TWO WEEKS AFTER 160 MG DOSE
     Dates: start: 2006, end: 2006
  3. HUMIRA [Suspect]
     Dosage: FOUR WEEKS AFTER 160 MG DOSE
  4. ACCUTANE [Concomitant]
     Indication: PRODUCT USED FOR UNKNOWN INDICATION
  5. ZYRTEC [Concomitant]
     Indication: PRODUCT USED FOR UNKNOWN INDICATION
  6. PATANOL [Concomitant]
     Indication: PRODUCT USED FOR UNKNOWN INDICATION
     Dosage: EYE DROPS
  7. MOXIFLOXACIN [Concomitant]
     Indication: PRODUCT USED FOR UNKNOWN INDICATION
     Dosage: EYE DROPS
  8. MAXIDE [Concomitant]
     Indication: PRODUCT USED FOR UNKNOWN INDICATION
  9. PREDNISOLONE [Concomitant]
     Indication: PRODUCT USED FOR UNKNOWN INDICATION
     Dosage: EYE DROPS
  10. LOMOTIL [Concomitant]
     Indication: PRODUCT USED FOR UNKNOWN INDICATION
  11. VIVELLE DOT [Concomitant]
     Indication: PRODUCT USED FOR UNKNOWN INDICATION
  12. ASPIRIN [Concomitant]
     Indication: PRODUCT USED FOR UNKNOWN INDICATION
  13. COLESTID [Concomitant]
     Indication: PRODUCT USED FOR UNKNOWN INDICATION
     Dates: end: 20130128
  14. COLESTID [Concomitant]
  15. VALIUM [Concomitant]
     Indication: PRODUCT USED FOR UNKNOWN INDICATION
  16. IBUPROFEN [Concomitant]
     Indication: PRODUCT USED FOR UNKNOWN INDICATION
  17. VITAMIN B12 [Concomitant]
     Indication: PRODUCT USED FOR UNKNOWN INDICATION

REACTIONS (9)
  - Thrombosis [Unknown]
  - Cerebrovascular accident [Unknown]
  - Urinary tract infection [Recovered/Resolved]
  - Sepsis [Recovered/Resolved]
  - Hemiparesis [Unknown]
  - Asthenia [Unknown]
  - Oedema peripheral [Unknown]
  - Thrombosis [Unknown]
  - Gallbladder cancer metastatic [Not Recovered/Not Resolved]
